FAERS Safety Report 7137742-3 (Version None)
Quarter: 2010Q4

REPORT INFORMATION
  Report Type: 
  Country: None (occurrence: None)
  Receive Date: 20101103
  Receipt Date: 20100923
  Transmission Date: 20110411
  Serious: Yes (Other)
  Sender: FDA-Public Use
  Company Number: 2010S1000708

PATIENT
  Age: 43 Year
  Sex: Male
  Weight: 120 kg

DRUGS (7)
  1. CUBICIN [Suspect]
     Indication: ENDOCARDITIS
     Dosage: 5.8 MG/KG; Q24H; IV
     Route: 042
     Dates: start: 20100206, end: 20100331
  2. TINZAPARIN [Concomitant]
  3. PARACETAMOL [Concomitant]
  4. OMEPRAZOLE [Concomitant]
  5. FRUMIL [Concomitant]
  6. ATROVENT [Concomitant]
  7. SALBUTAMOL [Concomitant]

REACTIONS (1)
  - ENDOCARDITIS [None]
